FAERS Safety Report 21861109 (Version 5)
Quarter: 2023Q1

REPORT INFORMATION
  Report Type: Spontaneous
  Country: JP (occurrence: JP)
  Receive Date: 20230113
  Receipt Date: 20230222
  Transmission Date: 20230417
  Serious: Yes (Death, Hospitalization, Other)
  Sender: FDA-Public Use
  Company Number: JP-DSJP-DSJ-2022-125174

PATIENT
  Age: 61 Year
  Sex: Male
  Weight: 48.6 kg

DRUGS (2)
  1. ENHERTU [Suspect]
     Active Substance: FAM-TRASTUZUMAB DERUXTECAN-NXKI
     Indication: HER2 positive gastric cancer
     Dosage: 6.4 MG/KG, ONCE EVERY 3 WK
     Route: 041
     Dates: start: 20210330, end: 20210330
  2. NK1 RECEPTOR ANTAGONIST [Concomitant]
     Dosage: UNK
     Route: 065
     Dates: start: 2021

REACTIONS (6)
  - Altered state of consciousness [Fatal]
  - Hepatic encephalopathy [Unknown]
  - Hypoglycaemia [Not Recovered/Not Resolved]
  - Hyperammonaemia [Recovered/Resolved]
  - Disease progression [Fatal]
  - Acidosis [Unknown]

NARRATIVE: CASE EVENT DATE: 20210101
